FAERS Safety Report 7507475-X (Version None)
Quarter: 2011Q2

REPORT INFORMATION
  Report Type: 
  Country: None (occurrence: None)
  Receive Date: 20110526
  Receipt Date: 20110203
  Transmission Date: 20111010
  Serious: No
  Sender: FDA-Public Use
  Company Number: US-MYLANLABS-2011S1002545

PATIENT
  Age: 46 Year
  Sex: Female

DRUGS (2)
  1. VALACYCLOVIR HYDROCHLORIDE [Suspect]
     Indication: HERPES SIMPLEX
     Route: 048
     Dates: start: 20101001, end: 20100101
  2. VALACYCLOVIR HYDROCHLORIDE [Suspect]
     Route: 048
     Dates: start: 20101001, end: 20100101

REACTIONS (2)
  - DRUG INEFFECTIVE [None]
  - HERPES VIRUS INFECTION [None]
